FAERS Safety Report 4804890-X (Version None)
Quarter: 2005Q4

REPORT INFORMATION
  Report Type: 
  Country: None (occurrence: None)
  Receive Date: 20051017
  Receipt Date: 20050908
  Transmission Date: 20060501
  Serious: Yes (Death, Hospitalization)
  Sender: FDA-Public Use
  Company Number: JP_050606722

PATIENT
  Age: 55 Year
  Sex: Male
  Weight: 62 kg

DRUGS (8)
  1. GEMZAR [Suspect]
     Indication: LUNG ADENOCARCINOMA STAGE III
     Dosage: 1350 MG OTHER
     Route: 050
     Dates: start: 20050328, end: 20050519
  2. NAVELBINE [Concomitant]
  3. DECADRON [Concomitant]
  4. KYTRIL [Concomitant]
  5. DUROTEP (FENTANYL) [Concomitant]
  6. FAMOTIDINE [Concomitant]
  7. LOXONIN (LOXOPROFEN SODIUM) [Concomitant]
  8. AMOBAN (ZOPICLONE) [Concomitant]

REACTIONS (2)
  - PLEURAL EFFUSION [None]
  - PNEUMONITIS [None]
